FAERS Safety Report 21549568 (Version 5)
Quarter: 2023Q2

REPORT INFORMATION
  Report Type: Spontaneous
  Country: JP (occurrence: JP)
  Receive Date: 20221103
  Receipt Date: 20230602
  Transmission Date: 20230722
  Serious: Yes (Death, Hospitalization, Other)
  Sender: FDA-Public Use
  Company Number: JP-JNJFOC-20221057264

PATIENT
  Age: 84 Year
  Sex: Male
  Weight: 39.7 kg

DRUGS (3)
  1. VELCADE [Suspect]
     Active Substance: BORTEZOMIB
     Indication: Plasma cell myeloma
     Dosage: 1.4 MILLIGRAM
     Route: 058
     Dates: start: 202204, end: 20220615
  2. DEXAMETHASONE [Suspect]
     Active Substance: DEXAMETHASONE
     Indication: Plasma cell myeloma
     Dosage: 20 MILLIGRAM
     Route: 065
     Dates: start: 202204, end: 20220615
  3. DARATUMUMAB\HYALURONIDASE-FIHJ [Suspect]
     Active Substance: DARATUMUMAB\HYALURONIDASE-FIHJ
     Indication: Plasma cell myeloma
     Dosage: 15 MILLILITER
     Route: 058
     Dates: start: 202204, end: 20220615

REACTIONS (2)
  - Pneumonia aspiration [Fatal]
  - Progressive multifocal leukoencephalopathy [Not Recovered/Not Resolved]

NARRATIVE: CASE EVENT DATE: 20220501
